FAERS Safety Report 9405716 (Version 1)
Quarter: 2013Q3

REPORT INFORMATION
  Report Type: Spontaneous
  Country: US (occurrence: US)
  Receive Date: 20130717
  Receipt Date: 20130717
  Transmission Date: 20140515
  Serious: Yes (Hospitalization, Other)
  Sender: FDA-Public Use
  Company Number: US-ASTRAZENECA-2013SE51719

PATIENT
  Age: 69 Year
  Sex: Female
  Weight: 81.6 kg

DRUGS (27)
  1. SYMBICORT [Suspect]
     Indication: CHRONIC OBSTRUCTIVE PULMONARY DISEASE
     Dosage: 160 MCG 2 PUFFS BID
     Route: 055
     Dates: start: 2010
  2. SYMBICORT [Suspect]
     Indication: ASTHMA
     Dosage: 160 MCG 2 PUFFS BID
     Route: 055
     Dates: start: 2010
  3. NEXIUM [Suspect]
     Indication: GASTROOESOPHAGEAL REFLUX DISEASE
     Route: 048
     Dates: start: 2009
  4. XANAX [Suspect]
     Indication: ANXIETY
     Dosage: 2.5 OR 5 MG PRN
     Route: 048
  5. PREDNISONE [Suspect]
     Indication: CHRONIC OBSTRUCTIVE PULMONARY DISEASE
     Route: 048
  6. PREDNISONE [Suspect]
     Indication: CHRONIC OBSTRUCTIVE PULMONARY DISEASE
     Route: 048
  7. HCTZ [Concomitant]
     Indication: FLUID RETENTION
     Route: 048
     Dates: start: 2006
  8. HCTZ [Concomitant]
     Indication: HYPERTENSION
     Route: 048
     Dates: start: 2006
  9. SINGULAR [Concomitant]
     Indication: ASTHMA
     Route: 048
     Dates: start: 2008
  10. PREDNISONE ZPACK [Concomitant]
     Indication: CHRONIC OBSTRUCTIVE PULMONARY DISEASE
     Dosage: PRN
     Route: 048
  11. NORVASC [Concomitant]
     Indication: HYPERTENSION
     Route: 048
     Dates: start: 201302
  12. CLARINEX [Concomitant]
     Indication: ASTHMA
     Route: 048
     Dates: start: 2010
  13. PATANASE 0.6 PERCENT [Concomitant]
     Indication: RHINORRHOEA
     Route: 045
     Dates: start: 2012
  14. PATANASE 0.6 PERCENT [Concomitant]
     Indication: NASAL CONGESTION
     Route: 045
     Dates: start: 2012
  15. PATANOL 0.1 PERCENT [Concomitant]
     Indication: EYE ALLERGY
     Dosage: 2 GTTS OU BID
     Route: 050
     Dates: start: 2011
  16. RESTASIS 0.5 PERCENT [Concomitant]
     Indication: DRY EYE
     Dosage: 1 GTT OU BID
     Route: 050
     Dates: start: 2011
  17. XOEPENEX [Concomitant]
     Indication: RESPIRATORY DISORDER
     Dosage: 45 MCG 2 PUFFS PRN
     Route: 055
     Dates: start: 2011
  18. XOEPENEX [Concomitant]
     Indication: RESPIRATORY DISORDER
     Route: 055
     Dates: start: 2011
  19. XOEPENEX [Concomitant]
     Indication: RESPIRATORY DISORDER
     Dosage: TWICE A WEEK
     Route: 055
  20. XOEPENEX [Concomitant]
     Indication: RESPIRATORY DISORDER
     Dosage: 3 TO 4 TIMES A WEEK
     Route: 055
  21. XOEPENEX [Concomitant]
     Indication: RESPIRATORY DISORDER
     Dosage: EVERY 6 HOURS
     Route: 055
     Dates: start: 20130704
  22. ALBUTEROL [Concomitant]
     Indication: RESPIRATORY DISORDER
     Dosage: PRN
     Route: 055
     Dates: end: 2011
  23. ALBUTEROL [Concomitant]
     Indication: RESPIRATORY DISORDER
     Dosage: PRN
     Route: 055
     Dates: end: 2011
  24. ALBUTEROL [Concomitant]
     Indication: RESPIRATORY DISORDER
     Dosage: PRN
     Route: 055
     Dates: end: 2011
  25. ALBUTEROL [Concomitant]
     Indication: RESPIRATORY DISORDER
     Dosage: PRN
     Route: 055
     Dates: end: 2011
  26. NASONEX [Concomitant]
     Indication: RHINORRHOEA
  27. NASONEX [Concomitant]
     Indication: NASAL CONGESTION

REACTIONS (7)
  - Chronic obstructive pulmonary disease [Unknown]
  - Hypertension [Unknown]
  - Cataract [Unknown]
  - Knee deformity [Unknown]
  - Weight abnormal [Unknown]
  - Anxiety [Unknown]
  - Depression [Unknown]
